FAERS Safety Report 9096246 (Version 1)
Quarter: 2013Q1

REPORT INFORMATION
  Report Type: Spontaneous
  Country: FR (occurrence: FR)
  Receive Date: 20130207
  Receipt Date: 20130207
  Transmission Date: 20140127
  Serious: Yes (Hospitalization, Other)
  Sender: FDA-Public Use
  Company Number: FR-BRISTOL-MYERS SQUIBB COMPANY-17247958

PATIENT
  Age: 74 Year
  Sex: Male

DRUGS (7)
  1. GLUCOPHAGE [Suspect]
     Route: 048
     Dates: end: 20121209
  2. DAONIL [Concomitant]
  3. ELISOR [Concomitant]
  4. KARDEGIC [Concomitant]
  5. OMEPRAZOLE [Concomitant]
  6. SECTRAL [Concomitant]
  7. TARDYFERON [Concomitant]

REACTIONS (2)
  - Lactic acidosis [Not Recovered/Not Resolved]
  - Hepatocellular carcinoma [Unknown]
